FAERS Safety Report 9399709 (Version 2)
Quarter: 2013Q3

REPORT INFORMATION
  Report Type: Spontaneous
  Country: DK (occurrence: DK)
  Receive Date: 20130715
  Receipt Date: 20130725
  Transmission Date: 20140515
  Serious: Yes (Other)
  Sender: FDA-Public Use
  Company Number: 2013SP005048

PATIENT
  Age: 65 Year
  Sex: Female

DRUGS (6)
  1. EPIRUBICIN [Suspect]
     Indication: BREAST CANCER
  2. PACLITAXEL [Suspect]
     Indication: BREAST CANCER
     Dates: start: 20110922
  3. VINORELBINE TARTRATE [Suspect]
     Indication: BREAST CANCER
     Dates: start: 20120423
  4. LAPATINIB DITOSYLATE MONOHYDRATE [Suspect]
     Indication: BREAST CANCER
     Dates: start: 20120625
  5. TRASTUZUMAB [Suspect]
     Indication: BREAST CANCER
     Dates: start: 20110922
  6. CAPECITABINE [Suspect]
     Indication: BREAST CANCER
     Dates: start: 20120625

REACTIONS (2)
  - Disease progression [Not Recovered/Not Resolved]
  - Hepatic enzyme increased [Not Recovered/Not Resolved]
